FAERS Safety Report 7277204-6 (Version None)
Quarter: 2011Q1

REPORT INFORMATION
  Report Type: 
  Country: None (occurrence: None)
  Receive Date: 20110202
  Receipt Date: 20110202
  Transmission Date: 20110831
  Serious: Yes (Other)
  Sender: FDA-Public Use
  Company Number: None

PATIENT
  Sex: Female
  Weight: 54.4316 kg

DRUGS (1)
  1. DEMEROL [Suspect]
     Indication: BUNION OPERATION
     Dosage: 1 TABLET 4-6 HOURS PO
     Route: 048
     Dates: start: 20110121, end: 20110123

REACTIONS (1)
  - DRUG HYPERSENSITIVITY [None]
